FAERS Safety Report 9017550 (Version 2)
Quarter: 2013Q1

REPORT INFORMATION
  Report Type: Spontaneous
  Country: US (occurrence: US)
  Receive Date: 20130117
  Receipt Date: 20130125
  Transmission Date: 20140127
  Serious: Yes (Other)
  Sender: FDA-Public Use
  Company Number: CHPA2013US001121

PATIENT
  Age: 80 Year
  Sex: Male

DRUGS (1)
  1. VOLTAREN GEL [Suspect]
     Indication: ARTHRITIS
     Dosage: 4 G, QD
     Route: 061

REACTIONS (3)
  - Exostosis [Recovered/Resolved]
  - Underdose [Unknown]
  - Drug administered at inappropriate site [Unknown]
